FAERS Safety Report 16827373 (Version 1)
Quarter: 2019Q3

REPORT INFORMATION
  Report Type: Spontaneous
  Country: FR (occurrence: FR)
  Receive Date: 20190919
  Receipt Date: 20190919
  Transmission Date: 20191005
  Serious: Yes (Other)
  Sender: FDA-Public Use
  Company Number: FR-ABBVIE-19K-056-2924370-00

PATIENT
  Sex: Female
  Weight: 53 kg

DRUGS (1)
  1. HUMIRA [Suspect]
     Active Substance: ADALIMUMAB
     Indication: COLITIS
     Route: 058
     Dates: start: 20170621

REACTIONS (5)
  - Dry skin [Recovered/Resolved]
  - Folliculitis [Recovered/Resolved]
  - Eczema [Not Recovered/Not Resolved]
  - Psoriasis [Not Recovered/Not Resolved]
  - Porokeratosis [Recovered/Resolved]

NARRATIVE: CASE EVENT DATE: 2017
